FAERS Safety Report 12585182 (Version 2)
Quarter: 2016Q3

REPORT INFORMATION
  Report Type: Report from Study
  Country: CA (occurrence: CA)
  Receive Date: 20160723
  Receipt Date: 20160926
  Transmission Date: 20161109
  Serious: Yes (Hospitalization, Other)
  Sender: FDA-Public Use
  Company Number: CA-009507513-1607CAN007875

PATIENT
  Age: 48 Year
  Sex: Female
  Weight: 97.51 kg

DRUGS (1)
  1. JANUMET [Suspect]
     Active Substance: METFORMIN HYDROCHLORIDE\SITAGLIPTIN PHOSPHATE
     Indication: TYPE 2 DIABETES MELLITUS
     Dosage: 50MG/1000 MG, 1 TABLET TWICE DAILY
     Route: 048
     Dates: start: 201505

REACTIONS (4)
  - Patella fracture [Recovered/Resolved]
  - Uterine leiomyoma [Unknown]
  - Thrombosis [Recovered/Resolved]
  - Postoperative abscess [Unknown]

NARRATIVE: CASE EVENT DATE: 20151027
